FAERS Safety Report 5056969-8 (Version None)
Quarter: 2006Q2

REPORT INFORMATION
  Report Type: 
  Country: None (occurrence: None)
  Receive Date: 20060621
  Receipt Date: 20060531
  Transmission Date: 20061013
  Serious: Yes (Other)
  Sender: FDA-Public Use
  Company Number: 1-13918907

PATIENT
  Sex: Male

DRUGS (2)
  1. ZONISAMIDE [Suspect]
     Indication: CONVULSION
     Dosage: 500 MG ONCE DAILY, ORAL
     Route: 048
     Dates: start: 20060214, end: 20060320
  2. ZONISAMIDE [Suspect]
     Indication: CONVULSION
     Dosage: 500 MG ONCE DAILY, ORAL
     Route: 048
     Dates: start: 20060320

REACTIONS (1)
  - CONVULSION [None]
